FAERS Safety Report 7148726-3 (Version None)
Quarter: 2010Q4

REPORT INFORMATION
  Report Type: 
  Country: None (occurrence: None)
  Receive Date: 20101124
  Receipt Date: 20101118
  Transmission Date: 20110411
  Serious: Yes (Hospitalization)
  Sender: FDA-Public Use
  Company Number: TRP_07396_2010

PATIENT
  Sex: Female
  Weight: 76.2043 kg

DRUGS (8)
  1. INFERGEN [Suspect]
     Indication: HEPATITIS C
     Dosage: 15 UG QD SUBCUTANEOUS
     Route: 058
     Dates: start: 20100911, end: 20101105
  2. INFERGEN [Suspect]
     Indication: HEPATITIS C
     Dosage: 15 UG QD SUBCUTANEOUS
     Route: 058
     Dates: start: 20101113, end: 20101115
  3. RIBAPAK (600 MG, 600 MG) (NOT SPECIFIED) [Suspect]
     Indication: HEPATITIS C
     Dosage: 1200 MG, DAILY ORAL
     Route: 048
     Dates: start: 20100911, end: 20101105
  4. RIBAPAK (600 MG, 600 MG) (NOT SPECIFIED) [Suspect]
     Indication: HEPATITIS C
     Dosage: 1200 MG, DAILY ORAL
     Route: 048
     Dates: start: 20101113, end: 20101115
  5. RIBAVIRIN [Suspect]
     Indication: HEPATITIS C
     Dosage: DF
     Dates: start: 20090101
  6. PEGASYS [Suspect]
     Indication: HEPATITIS C
     Dosage: DF
     Dates: start: 20090101
  7. CITALOPRAM [Concomitant]
  8. IRON [Concomitant]

REACTIONS (6)
  - ANAEMIA [None]
  - BLOOD COUNT ABNORMAL [None]
  - DYSPNOEA [None]
  - INFLUENZA LIKE ILLNESS [None]
  - PANCREATITIS [None]
  - SOMNOLENCE [None]
